FAERS Safety Report 7347535-X (Version None)
Quarter: 2011Q1

REPORT INFORMATION
  Report Type: 
  Country: None (occurrence: None)
  Receive Date: 20110311
  Receipt Date: 20100917
  Transmission Date: 20110831
  Serious: Yes (Other)
  Sender: FDA-Public Use
  Company Number: US-BAYER-201029764NA

PATIENT
  Sex: Female
  Weight: 52.154 kg

DRUGS (9)
  1. YAZ [Suspect]
     Indication: PREMENSTRUAL SYNDROME
  2. YAZ [Suspect]
     Indication: ACNE
  3. SINGULAIR [Concomitant]
     Indication: ASTHMA
  4. EFFEXOR [Concomitant]
  5. YASMIN [Suspect]
     Indication: PRODUCT USED FOR UNKNOWN INDICATION
     Route: 048
  6. ALBUTEROL [Concomitant]
  7. IMITREX [Concomitant]
     Indication: HEADACHE
     Dosage: 50 MG, UNK
     Dates: start: 20080707
  8. DITROPAN [Concomitant]
     Indication: HYPERTONIC BLADDER
  9. YAZ [Suspect]
     Indication: CONTRACEPTION
     Dosage: UNK
     Route: 048
     Dates: start: 20080610, end: 20091221

REACTIONS (3)
  - GALLBLADDER PAIN [None]
  - CHOLECYSTITIS CHRONIC [None]
  - ABDOMINAL PAIN UPPER [None]
